FAERS Safety Report 10592482 (Version 1)
Quarter: 2014Q4

REPORT INFORMATION
  Report Type: Spontaneous
  Country: AU (occurrence: AU)
  Receive Date: 20141119
  Receipt Date: 20141119
  Transmission Date: 20150529
  Serious: Yes (Hospitalization)
  Sender: FDA-Public Use
  Company Number: PHHY2014AU148467

PATIENT
  Age: 40 Year
  Sex: Female

DRUGS (2)
  1. LAMISIL [Suspect]
     Active Substance: TERBINAFINE HYDROCHLORIDE
     Dosage: UNK
     Route: 065
     Dates: start: 20141030
  2. LAMISIL [Suspect]
     Active Substance: TERBINAFINE HYDROCHLORIDE
     Indication: PRODUCT USED FOR UNKNOWN INDICATION
     Dosage: 1 DF, QD
     Route: 065
     Dates: start: 20141025

REACTIONS (5)
  - Movement disorder [Unknown]
  - Arthralgia [Unknown]
  - Myalgia [Unknown]
  - Gait disturbance [Unknown]
  - Reaction to drug excipients [Unknown]

NARRATIVE: CASE EVENT DATE: 20141027
